FAERS Safety Report 6217194-8 (Version None)
Quarter: 2009Q2

REPORT INFORMATION
  Report Type: 
  Country: None (occurrence: None)
  Receive Date: 20090608
  Receipt Date: 20090526
  Transmission Date: 20091009
  Serious: Yes (Other)
  Sender: FDA-Public Use
  Company Number: TR-RANBAXY-2009RR-24530

PATIENT
  Age: 67 Year
  Sex: Female

DRUGS (2)
  1. CEFTAZIDIME [Suspect]
     Dosage: 2 G, TID
  2. CIPROFLOXACIN [Suspect]
     Dosage: 200 MG, BID

REACTIONS (1)
  - STATUS EPILEPTICUS [None]
